FAERS Safety Report 23763144 (Version 1)
Quarter: 2024Q2

REPORT INFORMATION
  Report Type: Spontaneous
  Country: US (occurrence: US)
  Receive Date: 20240419
  Receipt Date: 20240419
  Transmission Date: 20240716
  Serious: Yes (Other)
  Sender: FDA-Public Use
  Company Number: US-TEVA-VS-3184111

PATIENT
  Sex: Female

DRUGS (1)
  1. ACTIQ [Suspect]
     Active Substance: FENTANYL CITRATE
     Indication: Product used for unknown indication
     Route: 065

REACTIONS (9)
  - Spinal fracture [Unknown]
  - Pain [Unknown]
  - Back disorder [Unknown]
  - Insomnia [Unknown]
  - Fall [Unknown]
  - Cough [Unknown]
  - Intervertebral disc disorder [Unknown]
  - Condition aggravated [Unknown]
  - Shoulder operation [Unknown]
